FAERS Safety Report 15233912 (Version 3)
Quarter: 2018Q3

REPORT INFORMATION
  Report Type: Report from Study
  Country: CO (occurrence: CO)
  Receive Date: 20180802
  Receipt Date: 20180904
  Transmission Date: 20181010
  Serious: Yes (Hospitalization, Other)
  Sender: FDA-Public Use
  Company Number: PHHY2018CO009496

PATIENT
  Age: 55 Year
  Sex: Male
  Weight: 95 kg

DRUGS (1)
  1. ENTRESTO [Suspect]
     Active Substance: SACUBITRIL\VALSARTAN
     Indication: CARDIAC FAILURE
     Dosage: 50 MG, Q12H
     Route: 048
     Dates: start: 20171231

REACTIONS (9)
  - Tachycardia [Unknown]
  - Fluid retention [Unknown]
  - Dysuria [Unknown]
  - Renal failure [Unknown]
  - Respiratory failure [Unknown]
  - Angina unstable [Unknown]
  - Peripheral swelling [Unknown]
  - Pulmonary oedema [Unknown]
  - Asphyxia [Unknown]

NARRATIVE: CASE EVENT DATE: 20180516
